FAERS Safety Report 6151932-8 (Version None)
Quarter: 2009Q2

REPORT INFORMATION
  Report Type: 
  Country: None (occurrence: None)
  Receive Date: 20090408
  Receipt Date: 20090119
  Transmission Date: 20091009
  Serious: Yes (Hospitalization, Other)
  Sender: FDA-Public Use
  Company Number: 000192

PATIENT
  Sex: Male
  Weight: 91 kg

DRUGS (5)
  1. VIMPAT [Suspect]
     Indication: EPILEPSY
     Dosage: (150 MG BID ORAL), (200 MG BID ORAL)
     Route: 048
     Dates: start: 20080901, end: 20081016
  2. VIMPAT [Suspect]
     Indication: EPILEPSY
     Dosage: (150 MG BID ORAL), (200 MG BID ORAL)
     Route: 048
     Dates: start: 20081017
  3. INFLUENZA VACCINE (FLU SHOT) [Suspect]
     Dosage: (ONCE)
     Dates: start: 20081014, end: 20081014
  4. LISKANTIN [Concomitant]
  5. ZONEGRAN [Concomitant]

REACTIONS (2)
  - GRAND MAL CONVULSION [None]
  - PROTEIN TOTAL INCREASED [None]
